FAERS Safety Report 7493795-4 (Version None)
Quarter: 2011Q2

REPORT INFORMATION
  Report Type: 
  Country: None (occurrence: None)
  Receive Date: 20110520
  Receipt Date: 20110210
  Transmission Date: 20111010
  Serious: No
  Sender: FDA-Public Use
  Company Number: US-ASTRAZENECA-2011SE08189

PATIENT
  Age: 75 Year
  Sex: Male

DRUGS (7)
  1. HYDROCHLOROTHIAZIDE [Concomitant]
     Indication: BLOOD PRESSURE
  2. VIMOVO [Suspect]
     Route: 048
  3. VITAMINS [Concomitant]
  4. PROZAC [Concomitant]
  5. LUMIGAN [Concomitant]
  6. AESOP [Concomitant]
  7. PROBIOTICS [Concomitant]

REACTIONS (2)
  - SLEEP DISORDER DUE TO GENERAL MEDICAL CONDITION, INSOMNIA TYPE [None]
  - RASH PRURITIC [None]
